FAERS Safety Report 4988385-9 (Version None)
Quarter: 2006Q2

REPORT INFORMATION
  Report Type: 
  Country: None (occurrence: None)
  Receive Date: 20060502
  Receipt Date: 20060426
  Transmission Date: 20061013
  Serious: Yes (Hospitalization)
  Sender: FDA-Public Use
  Company Number: FR-AVENTIS-200611601FR

PATIENT
  Age: 69 Year
  Sex: Female
  Weight: 72 kg

DRUGS (7)
  1. TAXOTERE [Suspect]
     Indication: BREAST CANCER
     Route: 042
     Dates: start: 20060324, end: 20060324
  2. MEDROL [Suspect]
     Route: 048
     Dates: start: 20060323, end: 20060323
  3. ACTOS [Suspect]
     Route: 048
  4. ENDOTELON 150 MG [Suspect]
     Route: 048
     Dates: end: 20060324
  5. ZOPHREN [Suspect]
     Route: 042
     Dates: start: 20060324, end: 20060324
  6. SOLU-MEDROL [Suspect]
     Route: 042
     Dates: start: 20060324, end: 20060324
  7. ARIMIDEX [Concomitant]
     Route: 048
     Dates: start: 20060105, end: 20060324

REACTIONS (1)
  - BLOOD GLUCOSE INCREASED [None]
